FAERS Safety Report 8131946-9 (Version None)
Quarter: 2012Q1

REPORT INFORMATION
  Report Type: 
  Country: None (occurrence: None)
  Receive Date: 20120208
  Receipt Date: 20120131
  Transmission Date: 20120608
  Serious: Yes (Other)
  Sender: FDA-Public Use
  Company Number: AUR-APL-2012-00739

PATIENT
  Sex: Female
  Weight: 67.1324 kg

DRUGS (4)
  1. SIMVASTATIN [Suspect]
     Indication: HYPERLIPIDAEMIA
     Dosage: 1 DOSAGE FORMS (1 DOSAGE FORMS, 1 IN 1 D), ORAL
     Route: 048
  2. VERAPAMIL [Suspect]
     Indication: PRODUCT USED FOR UNKNOWN INDICATION
     Dosage: (2 IN 1 D)
  3. WARFARIN SODIUM [Concomitant]
  4. LASIX [Concomitant]

REACTIONS (4)
  - DRUG INTERACTION [None]
  - MUSCLE DISORDER [None]
  - FIBROMYALGIA [None]
  - MUSCULAR WEAKNESS [None]
